FAERS Safety Report 4767039-8 (Version None)
Quarter: 2005Q3

REPORT INFORMATION
  Report Type: 
  Country: None (occurrence: None)
  Receive Date: 20050913
  Receipt Date: 20050725
  Transmission Date: 20060218
  Serious: Yes (Hospitalization)
  Sender: FDA-Public Use
  Company Number: US-JNJFOC-20050902449

PATIENT
  Sex: Female
  Weight: 0.65 kg

DRUGS (2)
  1. REMICADE [Suspect]
     Indication: CROHN'S DISEASE
  2. 6-MP [Concomitant]
     Route: 048

REACTIONS (1)
  - PREMATURE BABY [None]
